FAERS Safety Report 15319981 (Version 1)
Quarter: 2018Q4

REPORT INFORMATION
  Report Type: Spontaneous
  Country: US (occurrence: US)
  Receive Date: 20180827
  Receipt Date: 20180827
  Transmission Date: 20190204
  Serious: No
  Sender: FDA-Public Use
  Company Number: US-ORPHAN EUROPE-2054251

PATIENT
  Age: 30 Year
  Sex: Female

DRUGS (1)
  1. CARBAGLU [Suspect]
     Active Substance: CARGLUMIC ACID
     Dates: start: 20170506

REACTIONS (2)
  - Exposure during pregnancy [Unknown]
  - Vomiting [Unknown]
